FAERS Safety Report 23315454 (Version 4)
Quarter: 2024Q1

REPORT INFORMATION
  Report Type: Spontaneous
  Country: GB (occurrence: GB)
  Receive Date: 20231219
  Receipt Date: 20240311
  Transmission Date: 20240410
  Serious: Yes (Hospitalization)
  Sender: FDA-Public Use
  Company Number: GB-MYLANLABS-2022M1118012

PATIENT
  Age: 58 Year
  Sex: Male

DRUGS (23)
  1. CLOZARIL [Suspect]
     Active Substance: CLOZAPINE
     Indication: Schizophrenia
     Dosage: UNK
     Route: 048
     Dates: start: 20170816, end: 20231205
  2. CLOZARIL [Suspect]
     Active Substance: CLOZAPINE
     Dosage: UNK, BID (75MG MORNING, 100MG NIGHT)
     Route: 048
     Dates: start: 20240113
  3. CLOZARIL [Suspect]
     Active Substance: CLOZAPINE
     Dosage: 100 MILLIGRAM, BID
     Route: 048
     Dates: start: 20240114
  4. CLOZARIL [Suspect]
     Active Substance: CLOZAPINE
     Dosage: UNK, BID (100MG MORNING, 125MG NIGHT)
     Route: 048
     Dates: start: 20240115
  5. CLOZARIL [Suspect]
     Active Substance: CLOZAPINE
     Dosage: 125 MILLIGRAM, BID
     Route: 048
     Dates: start: 20240116
  6. CLOZARIL [Suspect]
     Active Substance: CLOZAPINE
     Dosage: UNK, BID (125MG MORNING, 150MG NIGHT)
     Route: 048
     Dates: start: 20240117
  7. CLOZARIL [Suspect]
     Active Substance: CLOZAPINE
     Dosage: 150 MILLIGRAM, BID
     Route: 048
     Dates: start: 20240118
  8. CLOZARIL [Suspect]
     Active Substance: CLOZAPINE
     Dosage: UNK, BID (150MG MORNING, 175MG NIGHT)
     Route: 048
     Dates: start: 20240119
  9. SERETIDE [Concomitant]
     Active Substance: FLUTICASONE PROPIONATE\SALMETEROL XINAFOATE
     Dosage: 1 PUFF, BID
     Route: 055
     Dates: start: 20240113
  10. BECLOMETHASONE\FORMOTEROL [Concomitant]
     Active Substance: BECLOMETHASONE\FORMOTEROL
     Dosage: 2 PUFF, BID
     Route: 055
     Dates: start: 20240113, end: 20240116
  11. LORAZEPAM [Concomitant]
     Active Substance: LORAZEPAM
     Dosage: 1-2 MG, PRN
     Route: 048
     Dates: start: 20230113
  12. LORAZEPAM [Concomitant]
     Active Substance: LORAZEPAM
     Dosage: 2 MILLIGRAM, PRN
     Route: 048
     Dates: start: 20240115
  13. ASPIRIN [Concomitant]
     Active Substance: ASPIRIN
     Dosage: 75 MILLIGRAM, QD
     Route: 048
     Dates: start: 20240113
  14. LANSOPRAZOLE [Concomitant]
     Active Substance: LANSOPRAZOLE
     Dosage: 30 MILLIGRAM, QD
     Route: 048
     Dates: start: 20240113
  15. LAMOTRIGINE [Concomitant]
     Active Substance: LAMOTRIGINE
     Dosage: 100 MILLIGRAM, BID
     Route: 048
     Dates: start: 20240113
  16. SCOPOLAMINE HYDROBROMIDE [Concomitant]
     Active Substance: SCOPOLAMINE HYDROBROMIDE
     Dosage: 300 MICROGRAM, QD
     Route: 048
     Dates: start: 20240113
  17. SERTRALINE [Concomitant]
     Active Substance: SERTRALINE HYDROCHLORIDE
     Dosage: 50 MILLIGRAM, QD
     Route: 048
     Dates: start: 20240113, end: 20240113
  18. SERTRALINE [Concomitant]
     Active Substance: SERTRALINE HYDROCHLORIDE
     Dosage: 50 MILLIGRAM, QD
     Route: 048
     Dates: start: 20240114
  19. VALPROATE SODIUM [Concomitant]
     Active Substance: VALPROATE SODIUM
     Dosage: 500 MILLIGRAM, BID
     Route: 048
     Dates: start: 20240113
  20. VITAMIN D [Concomitant]
     Active Substance: VITAMIN D NOS
     Dosage: UNK, QW
     Route: 065
  21. ZOPICLONE [Concomitant]
     Active Substance: ZOPICLONE
     Dosage: 7.5 MILLIGRAM NOCTE
     Route: 048
     Dates: start: 20240113
  22. ZOPICLONE [Concomitant]
     Active Substance: ZOPICLONE
     Dosage: 7.5 MILLIGRAM, PRN
     Route: 048
     Dates: start: 20240113
  23. ALBUTEROL [Concomitant]
     Active Substance: ALBUTEROL
     Dosage: 1 TO 2 PUFFS, PRN
     Route: 055
     Dates: start: 20240116

REACTIONS (7)
  - Respiratory disorder [Unknown]
  - Chest pain [Unknown]
  - Psychotic disorder [Unknown]
  - Malaise [Unknown]
  - Differential white blood cell count abnormal [Not Recovered/Not Resolved]
  - Treatment noncompliance [Unknown]
  - Contraindicated product administered [Unknown]

NARRATIVE: CASE EVENT DATE: 20221025
